FAERS Safety Report 4332997-2 (Version None)
Quarter: 2004Q1

REPORT INFORMATION
  Report Type: 
  Country: None (occurrence: None)
  Receive Date: 20040330
  Receipt Date: 20040318
  Transmission Date: 20041129
  Serious: Yes (Hospitalization)
  Sender: FDA-Public Use
  Company Number: 04P-056-0254197-00

PATIENT
  Age: 58 Year
  Sex: Male

DRUGS (9)
  1. DEPAKOTE [Suspect]
     Indication: ABNORMAL BEHAVIOUR
     Dosage: SEE IMAGE
     Route: 048
     Dates: start: 20031219, end: 20031231
  2. DEPAKOTE [Suspect]
     Indication: AFFECTIVE DISORDER
     Dosage: SEE IMAGE
     Route: 048
     Dates: start: 20031219, end: 20031231
  3. DEPAKOTE [Suspect]
     Indication: PERSONALITY DISORDER
     Dosage: SEE IMAGE
     Route: 048
     Dates: start: 20031219, end: 20031231
  4. DEPAKOTE [Suspect]
     Indication: ABNORMAL BEHAVIOUR
     Dosage: SEE IMAGE
     Route: 048
     Dates: start: 20040101
  5. DEPAKOTE [Suspect]
     Indication: AFFECTIVE DISORDER
     Dosage: SEE IMAGE
     Route: 048
     Dates: start: 20040101
  6. DEPAKOTE [Suspect]
     Indication: PERSONALITY DISORDER
     Dosage: SEE IMAGE
     Route: 048
     Dates: start: 20040101
  7. CYAMEMAZINE [Concomitant]
  8. OXAZEPAM [Concomitant]
  9. METFORMIN EMBONATE [Concomitant]

REACTIONS (2)
  - SUPRAVENTRICULAR TACHYCARDIA [None]
  - THROMBOCYTOPENIA [None]
